FAERS Safety Report 6504148-7 (Version None)
Quarter: 2009Q4

REPORT INFORMATION
  Report Type: 
  Country: None (occurrence: None)
  Receive Date: 20091217
  Receipt Date: 20091214
  Transmission Date: 20100525
  Serious: Yes (Hospitalization)
  Sender: FDA-Public Use
  Company Number: IN-ROXANE LABORATORIES, INC.-2009-RO-01259RO

PATIENT
  Age: 11 Year
  Sex: Female
  Weight: 37 kg

DRUGS (7)
  1. MEFLOQUINE HCL [Suspect]
     Indication: PLASMODIUM FALCIPARUM INFECTION
     Route: 048
  2. ARTESUNATE [Suspect]
     Indication: PLASMODIUM FALCIPARUM INFECTION
     Route: 051
  3. ARTESUNATE [Suspect]
     Route: 051
  4. ARTESUNATE [Suspect]
     Route: 051
  5. PRIMAQUINE [Suspect]
     Indication: PLASMODIUM FALCIPARUM INFECTION
  6. RISPERIDONE [Concomitant]
     Indication: MANIA
  7. RISPERIDONE [Concomitant]
     Indication: PSYCHOTIC DISORDER

REACTIONS (2)
  - MANIA [None]
  - PSYCHOTIC DISORDER [None]
